FAERS Safety Report 5073269-0 (Version None)
Quarter: 2006Q3

REPORT INFORMATION
  Report Type: 
  Country: None (occurrence: None)
  Receive Date: 20060802
  Receipt Date: 20060720
  Transmission Date: 20061208
  Serious: Yes (Hospitalization, Other)
  Sender: FDA-Public Use
  Company Number: 2006083106

PATIENT
  Sex: Female

DRUGS (3)
  1. DETROL LA [Suspect]
     Indication: HYPERTONIC BLADDER
     Dosage: (2 IN 1 D)
  2. DITROPAN [Suspect]
     Indication: HYPERTONIC BLADDER
     Dosage: 15 MG
  3. TROSPIUM [Suspect]
     Indication: HYPERTONIC BLADDER
     Dosage: 20 MG

REACTIONS (8)
  - ARTHRITIS [None]
  - BLOOD CHOLESTEROL ABNORMAL [None]
  - DRUG EFFECT DECREASED [None]
  - DRUG INEFFECTIVE [None]
  - GASTRIC DISORDER [None]
  - MICTURITION URGENCY [None]
  - URINARY INCONTINENCE [None]
  - WEIGHT INCREASED [None]
